FAERS Safety Report 18523239 (Version 3)
Quarter: 2021Q1

REPORT INFORMATION
  Report Type: Report from Study
  Country: US (occurrence: US)
  Receive Date: 20201119
  Receipt Date: 20210222
  Transmission Date: 20210419
  Serious: Yes (Death)
  Sender: FDA-Public Use
  Company Number: US-BAUSCH-BL-2020-034084

PATIENT
  Age: 82 Year
  Sex: Male

DRUGS (12)
  1. LASIX [Concomitant]
     Active Substance: FUROSEMIDE
     Indication: PRODUCT USED FOR UNKNOWN INDICATION
     Dosage: 180 TABLETS?2 TABLETS BY MOUTH EVERY DAY
     Route: 048
     Dates: start: 20200701
  2. LASIX [Concomitant]
     Active Substance: FUROSEMIDE
     Dosage: 30 TABLETS?1 TABLETS BY MOUTH ONCE DAILY
     Route: 048
     Dates: start: 20200914
  3. HALDOL [Concomitant]
     Active Substance: HALOPERIDOL
     Indication: DELIRIUM
  4. ONDANSETRON [Concomitant]
     Active Substance: ONDANSETRON
     Indication: PRODUCT USED FOR UNKNOWN INDICATION
     Dosage: INJECT 4MG INTO THE VEIN DAILY AS NEEDED ?4MG/2ML SOLUTION
     Route: 042
     Dates: start: 20200911
  5. ISOPTO ATROPINE [Concomitant]
     Active Substance: ATROPINE SULFATE
     Indication: ILL-DEFINED DISORDER
     Route: 060
     Dates: start: 20200911
  6. XIFAXAN [Suspect]
     Active Substance: RIFAXIMIN
     Dosage: 2 TIMES DAILY
     Route: 048
     Dates: start: 20200210
  7. DEPAKOTE [Concomitant]
     Active Substance: DIVALPROEX SODIUM
     Indication: PRODUCT USED FOR UNKNOWN INDICATION
     Dosage: 2 TABLET (500 MG TOTAL) EVERY EVENING, 180 TABLETS
     Route: 048
     Dates: start: 20200827
  8. HALDOL [Concomitant]
     Active Substance: HALOPERIDOL
     Indication: AGITATION
     Dosage: INJECT 0.2 MLS (1 MG TOTAL) INTO THE VEIN EVERY 4 HOURS AS NEEDED
     Route: 042
     Dates: start: 20200911
  9. CHRONULAC [Concomitant]
     Active Substance: LACTULOSE
     Indication: PRODUCT USED FOR UNKNOWN INDICATION
     Dosage: TAKE 15 ML BY MOUTH TWICE DAILY?10 GRAM/15 ML
     Route: 048
     Dates: start: 20200406
  10. XIFAXAN [Suspect]
     Active Substance: RIFAXIMIN
     Indication: PRODUCT USED FOR UNKNOWN INDICATION
     Dosage: 2 TIMES DAILY
     Route: 048
     Dates: start: 20191207
  11. ZENPEP [Concomitant]
     Active Substance: PANCRELIPASE AMYLASE\PANCRELIPASE LIPASE\PANCRELIPASE PROTEASE
     Indication: PRODUCT USED FOR UNKNOWN INDICATION
     Dosage: TAKE 1 CAPSULE BY MOUTH 3 TIMES DAILY WITH MEALS?5000?17000?24000 UNIT CPDR
     Route: 048
     Dates: start: 20200901
  12. PROTONIX [Concomitant]
     Active Substance: PANTOPRAZOLE SODIUM
     Indication: PRODUCT USED FOR UNKNOWN INDICATION
     Dosage: TAKE 1 TABLET BY MOUTH 2 TIMES DAILY BEFORE MEALS
     Route: 048
     Dates: start: 20200911

REACTIONS (1)
  - Death [Fatal]

NARRATIVE: CASE EVENT DATE: 20201007
